FAERS Safety Report 19057114 (Version 1)
Quarter: 2021Q1

REPORT INFORMATION
  Report Type: Spontaneous
  Country: US (occurrence: US)
  Receive Date: 20210324
  Receipt Date: 20210324
  Transmission Date: 20210420
  Serious: No
  Sender: FDA-Public Use
  Company Number: US-HISAMITSU-2020-US-011947

PATIENT
  Age: 80 Year
  Sex: Female
  Weight: 43.09 kg

DRUGS (5)
  1. VITAMIN D3 [Concomitant]
     Active Substance: CHOLECALCIFEROL
  2. PREMARIN VAGINAL [Concomitant]
     Active Substance: ESTROGENS, CONJUGATED
  3. SALONPAS PAIN RELIEF [Suspect]
     Active Substance: MENTHOL\METHYL SALICYLATE
     Indication: ANALGESIC THERAPY
     Dosage: 1?2 PATCHES DAILY FOR 7 DAYS
     Route: 061
     Dates: start: 20200601, end: 20200607
  4. CINNAMON. [Concomitant]
     Active Substance: CINNAMON
  5. CENTRUM FOR WOMEN [Concomitant]
     Active Substance: VITAMINS

REACTIONS (3)
  - Pain [Recovered/Resolved]
  - Intentional product misuse [Recovered/Resolved]
  - Application site pain [Recovered/Resolved]

NARRATIVE: CASE EVENT DATE: 20200601
